FAERS Safety Report 13494776 (Version 1)
Quarter: 2017Q2

REPORT INFORMATION
  Report Type: Spontaneous
  Country: US (occurrence: US)
  Receive Date: 20170428
  Receipt Date: 20170428
  Transmission Date: 20170830
  Serious: No
  Sender: FDA-Public Use
  Company Number: US-PFIZER INC-2017181953

PATIENT
  Age: 71 Year
  Sex: Female

DRUGS (4)
  1. LYRICA [Suspect]
     Active Substance: PREGABALIN
     Dosage: 100 MG, 2X/DAY
  2. LYRICA [Suspect]
     Active Substance: PREGABALIN
     Indication: PHANTOM PAIN
     Dosage: 50 MG, 2X/DAY
  3. LYRICA [Suspect]
     Active Substance: PREGABALIN
     Indication: NEUROPATHY PERIPHERAL
     Dosage: 75 MG, 2X/DAY
  4. LYRICA [Suspect]
     Active Substance: PREGABALIN
     Indication: FIBROMYALGIA
     Dosage: UNK

REACTIONS (17)
  - Condition aggravated [Unknown]
  - Phantom pain [Not Recovered/Not Resolved]
  - Dyspnoea [Unknown]
  - Chills [Unknown]
  - Intentional product use issue [Unknown]
  - Tremor [Unknown]
  - Faeces soft [Unknown]
  - Malaise [Unknown]
  - Feeling cold [Unknown]
  - Night sweats [Unknown]
  - Abdominal discomfort [Unknown]
  - Insomnia [Unknown]
  - Somnolence [Unknown]
  - Neuropathy peripheral [Unknown]
  - Fatigue [Unknown]
  - Feeling jittery [Unknown]
  - Asthenia [Unknown]
